FAERS Safety Report 4268812-5 (Version None)
Quarter: 2004Q1

REPORT INFORMATION
  Report Type: 
  Country: None (occurrence: None)
  Receive Date: 20040113
  Receipt Date: 20031212
  Transmission Date: 20041129
  Serious: Yes (Hospitalization)
  Sender: FDA-Public Use
  Company Number: FR-BRISTOL-MYERS SQUIBB COMPANY-12457792

PATIENT
  Age: 13 Year
  Sex: Female

DRUGS (2)
  1. NIFLURIL [Suspect]
     Indication: TOOTHACHE
     Route: 048
     Dates: start: 20031105, end: 20031113
  2. AMOXICILLIN [Suspect]
     Indication: TOOTHACHE
     Route: 048
     Dates: start: 20031105, end: 20031113

REACTIONS (6)
  - C-REACTIVE PROTEIN INCREASED [None]
  - DYSPEPSIA [None]
  - HAEMATURIA [None]
  - LABORATORY TEST ABNORMAL [None]
  - NAUSEA [None]
  - RENAL FAILURE ACUTE [None]
